FAERS Safety Report 23987980 (Version 1)
Quarter: 2024Q2

REPORT INFORMATION
  Report Type: Spontaneous
  Country: US (occurrence: US)
  Receive Date: 20240619
  Receipt Date: 20240619
  Transmission Date: 20240716
  Serious: No
  Sender: FDA-Public Use
  Company Number: US-SUN PHARMACEUTICAL INDUSTRIES LTD-2024R1-433864

PATIENT
  Sex: Female

DRUGS (1)
  1. NIACIN [Suspect]
     Active Substance: NIACIN
     Indication: Product used for unknown indication
     Route: 065

REACTIONS (2)
  - Recalled product administered [Unknown]
  - Therapy cessation [Unknown]
